FAERS Safety Report 4295287-2 (Version None)
Quarter: 2004Q1

REPORT INFORMATION
  Report Type: 
  Country: None (occurrence: None)
  Receive Date: 20040216
  Receipt Date: 20030512
  Transmission Date: 20041129
  Serious: Yes (Other)
  Sender: FDA-Public Use
  Company Number: US-GLAXOSMITHKLINE-A0408555A

PATIENT
  Age: 42 Year
  Sex: Female
  Weight: 90 kg

DRUGS (3)
  1. LAMICTAL [Suspect]
     Indication: MIGRAINE PROPHYLAXIS
     Dosage: 75MG PER DAY
     Route: 048
     Dates: end: 20030503
  2. MAXALT [Concomitant]
  3. CELEXA [Concomitant]

REACTIONS (12)
  - HYPERSENSITIVITY [None]
  - INFLUENZA LIKE ILLNESS [None]
  - LYMPHADENOPATHY [None]
  - NAUSEA [None]
  - NEUTROPHIL COUNT DECREASED [None]
  - NITRITE URINE [None]
  - PCO2 DECREASED [None]
  - PYREXIA [None]
  - RASH MACULAR [None]
  - RASH MACULO-PAPULAR [None]
  - URINE ABNORMALITY [None]
  - VOMITING [None]
